FAERS Safety Report 6847392-1 (Version None)
Quarter: 2010Q3

REPORT INFORMATION
  Report Type: 
  Country: None (occurrence: None)
  Receive Date: 20100716
  Receipt Date: 20100707
  Transmission Date: 20110219
  Serious: Yes (Hospitalization)
  Sender: FDA-Public Use
  Company Number: TW-ASTRAZENECA-2010SE31636

PATIENT
  Age: 86 Year
  Sex: Female

DRUGS (1)
  1. IRESSA [Suspect]
     Indication: NON-SMALL CELL LUNG CANCER
     Route: 048
     Dates: start: 20100623

REACTIONS (4)
  - DIARRHOEA HAEMORRHAGIC [None]
  - LOSS OF CONSCIOUSNESS [None]
  - SEPSIS [None]
  - URINARY TRACT INFECTION [None]
